FAERS Safety Report 11690807 (Version 2)
Quarter: 2015Q4

REPORT INFORMATION
  Report Type: Report from Study
  Country: US (occurrence: US)
  Receive Date: 20151102
  Receipt Date: 20151111
  Transmission Date: 20160304
  Serious: Yes (Hospitalization, Other)
  Sender: FDA-Public Use
  Company Number: US-BAXALTA-2015BLT002439

PATIENT
  Age: 58 Year
  Sex: Female
  Weight: 53 kg

DRUGS (1)
  1. GAMMAGARD LIQUID [Suspect]
     Active Substance: HUMAN IMMUNOGLOBULIN G
     Indication: PRIMARY IMMUNODEFICIENCY SYNDROME
     Dosage: 10 G, 1X A WEEK
     Route: 058

REACTIONS (4)
  - Pneumonia [Recovered/Resolved]
  - Clostridium difficile infection [Recovering/Resolving]
  - Diarrhoea [Recovering/Resolving]
  - Enterococcal infection [Unknown]

NARRATIVE: CASE EVENT DATE: 20151012
